FAERS Safety Report 13745079 (Version 1)
Quarter: 2017Q3

REPORT INFORMATION
  Report Type: Spontaneous
  Country: DE (occurrence: DE)
  Receive Date: 20170712
  Receipt Date: 20170712
  Transmission Date: 20171127
  Serious: Yes (Life-Threatening, Hospitalization, Other)
  Sender: FDA-Public Use
  Company Number: DE-BRISTOL-MYERS SQUIBB COMPANY-11964442

PATIENT
  Age: 79 Year
  Sex: Male

DRUGS (10)
  1. DIGITOXIN [Suspect]
     Active Substance: DIGITOXIN
     Indication: ARRHYTHMIA
     Dosage: .7 MG, QD
     Route: 048
  2. GLUCOBAY [Concomitant]
     Active Substance: ACARBOSE
     Indication: DIABETES MELLITUS
     Dosage: 100 MG, TID
     Route: 048
     Dates: end: 20020714
  3. IRBESARTAN,HYDROCHLOROTHIAZIDE [Suspect]
     Active Substance: HYDROCHLOROTHIAZIDE\IRBESARTAN
     Indication: HYPERTENSION
     Dosage: 162.5 MG, QD
     Route: 048
     Dates: end: 20020215
  4. PROTAPHANE HM [Concomitant]
     Indication: DIABETES MELLITUS
     Dosage: UNK
     Route: 058
  5. NITRENDIPINE [Concomitant]
     Active Substance: NITRENDIPINE
     Indication: HYPERTENSION
     Dosage: 20 MG, BID
     Route: 048
  6. SOTABETA [Suspect]
     Active Substance: SOTALOL HYDROCHLORIDE
     Indication: EXTRASYSTOLES
     Dosage: 80 MG, TID
     Route: 048
     Dates: start: 20020201, end: 20020214
  7. ACTRAPID [Concomitant]
     Active Substance: INSULIN HUMAN
     Indication: DIABETES MELLITUS
     Dosage: UNK
     Route: 058
  8. ASS 100 [Concomitant]
     Active Substance: ASPIRIN
     Indication: CORONARY ARTERY DISEASE
     Dosage: 100 MG, QD
     Route: 048
  9. PHYSIOTENS [Interacting]
     Active Substance: MOXONIDINE
     Indication: HYPERTENSION
     Dosage: .3 MG, QD
     Route: 048
     Dates: end: 20020214
  10. FURANTHRIL [Concomitant]
     Indication: HYPERTENSION
     Dosage: 40 MG, QD
     Route: 048

REACTIONS (8)
  - Atrial fibrillation [None]
  - Acute kidney injury [Recovered/Resolved]
  - Breast pain [None]
  - Drug interaction [Recovered/Resolved]
  - Hyperkalaemia [Recovered/Resolved]
  - Nodal rhythm [None]
  - Bradycardia [Recovered/Resolved]
  - Sinoatrial block [Recovered/Resolved]

NARRATIVE: CASE EVENT DATE: 20020201
